FAERS Safety Report 7698869-0 (Version None)
Quarter: 2011Q3

REPORT INFORMATION
  Report Type: 
  Country: None (occurrence: None)
  Receive Date: 20110819
  Receipt Date: 20110810
  Transmission Date: 20111222
  Serious: Yes (Hospitalization)
  Sender: FDA-Public Use
  Company Number: PHHY2011DE72353

PATIENT

DRUGS (1)
  1. ONBREZ [Suspect]
     Dosage: 300 UG, QD
     Route: 048
     Dates: start: 20110707, end: 20110711

REACTIONS (1)
  - TACHYARRHYTHMIA [None]
